FAERS Safety Report 12606022 (Version 3)
Quarter: 2016Q3

REPORT INFORMATION
  Report Type: Spontaneous
  Country: US (occurrence: US)
  Receive Date: 20160729
  Receipt Date: 20160818
  Transmission Date: 20161109
  Serious: No
  Sender: FDA-Public Use
  Company Number: US-PFIZER INC-2016338500

PATIENT
  Sex: Female

DRUGS (2)
  1. GOLD [Suspect]
     Active Substance: GOLD
     Dosage: UNK
  2. METHOTREXATE SODIUM. [Suspect]
     Active Substance: METHOTREXATE SODIUM
     Dosage: UNK
     Dates: start: 1990

REACTIONS (1)
  - Drug hypersensitivity [Not Recovered/Not Resolved]
